FAERS Safety Report 21185059 (Version 1)
Quarter: 2022Q3

REPORT INFORMATION
  Report Type: Spontaneous
  Country: CN (occurrence: CN)
  Receive Date: 20220808
  Receipt Date: 20220808
  Transmission Date: 20221027
  Serious: Yes (Hospitalization, Other)
  Sender: FDA-Public Use
  Company Number: CN-PFIZER INC-PV202200036605

PATIENT
  Age: 47 Year
  Sex: Female
  Weight: 49 kg

DRUGS (2)
  1. EPIRUBICIN HYDROCHLORIDE [Suspect]
     Active Substance: EPIRUBICIN HYDROCHLORIDE
     Indication: Neoplasm
     Dosage: 40 MG, 1X/DAY
     Route: 041
     Dates: start: 20220511, end: 20220511
  2. OXALIPLATIN [Suspect]
     Active Substance: OXALIPLATIN
     Indication: Therapeutic procedure
     Dosage: 150 MG, 1X/DAY
     Route: 041
     Dates: start: 20220511, end: 20220511

REACTIONS (1)
  - Hepatic function abnormal [Recovering/Resolving]

NARRATIVE: CASE EVENT DATE: 20220514
